FAERS Safety Report 9952121 (Version 1)
Quarter: 2014Q1

REPORT INFORMATION
  Report Type: Spontaneous
  Country: US (occurrence: US)
  Receive Date: 20140304
  Receipt Date: 20140304
  Transmission Date: 20141002
  Serious: No
  Sender: FDA-Public Use
  Company Number: US-ABBVIE-13P-163-1070377-00

PATIENT
  Age: 63 Year
  Sex: Female

DRUGS (3)
  1. HUMIRA [Suspect]
     Indication: CROHN^S DISEASE
     Dosage: ONE-TIME DOSE
     Route: 058
     Dates: start: 201210, end: 201210
  2. HUMIRA [Suspect]
     Route: 058
     Dates: start: 201210, end: 201210
  3. HUMIRA [Suspect]
     Route: 058
     Dates: start: 201211

REACTIONS (4)
  - Device malfunction [Unknown]
  - Injection site pain [Recovered/Resolved]
  - Injection site haemorrhage [Recovered/Resolved]
  - Local swelling [Recovered/Resolved]
